FAERS Safety Report 10028506 (Version 1)
Quarter: 2014Q1

REPORT INFORMATION
  Report Type: Spontaneous
  Country: US (occurrence: US)
  Receive Date: 20140321
  Receipt Date: 20140321
  Transmission Date: 20141002
  Serious: Yes (Hospitalization, Other)
  Sender: FDA-Public Use
  Company Number: US-ELI_LILLY_AND_COMPANY-US201403003997

PATIENT
  Sex: Female

DRUGS (8)
  1. HUMALOG LISPRO [Suspect]
     Indication: TYPE 1 DIABETES MELLITUS
     Dosage: UNK UNK, TID
     Route: 065
  2. HUMALOG LISPRO [Suspect]
     Indication: TYPE 1 DIABETES MELLITUS
     Dosage: UNK UNK, TID
     Route: 065
  3. LANTUS [Concomitant]
  4. RAPAMUNE [Concomitant]
  5. CLONIDINE [Concomitant]
  6. ASPIRIN LOW [Concomitant]
  7. LEVOTHYROXINE [Concomitant]
  8. CELLCEPT                           /01275102/ [Concomitant]

REACTIONS (3)
  - Renal disorder [Not Recovered/Not Resolved]
  - Nasopharyngitis [Unknown]
  - Impaired healing [Unknown]
